FAERS Safety Report 12543444 (Version 2)
Quarter: 2016Q3

REPORT INFORMATION
  Report Type: Spontaneous
  Country: US (occurrence: US)
  Receive Date: 20160711
  Receipt Date: 20160823
  Transmission Date: 20161109
  Serious: No
  Sender: FDA-Public Use
  Company Number: US-TEVA-644602USA

PATIENT
  Age: 65 Year
  Sex: Female
  Weight: 79.45 kg

DRUGS (2)
  1. VENLAFAXINE [Suspect]
     Active Substance: VENLAFAXINE HYDROCHLORIDE
     Indication: ANXIETY
     Dates: start: 2013
  2. VENLAFAXINE [Suspect]
     Active Substance: VENLAFAXINE HYDROCHLORIDE
     Indication: DEPRESSION

REACTIONS (5)
  - Anxiety [Unknown]
  - Product substitution issue [Unknown]
  - Drug ineffective [Unknown]
  - Restlessness [Unknown]
  - Product use issue [Unknown]

NARRATIVE: CASE EVENT DATE: 201601
